FAERS Safety Report 8769010 (Version 3)
Quarter: 2012Q4

REPORT INFORMATION
  Report Type: 
  Country: US (occurrence: US)
  Receive Date: 20120904
  Receipt Date: 20121003
  Transmission Date: 20130627
  Serious: No
  Sender: FDA-Public Use
  Company Number: US-009507513-1208USA009073

PATIENT
  Sex: Female

DRUGS (2)
  1. MIRALAX [Suspect]
     Indication: CONSTIPATION
     Dosage: 17 g, qam
     Route: 048
     Dates: start: 201206, end: 2012
  2. SENNA [Concomitant]
     Indication: CONSTIPATION
     Dosage: UNK, Unknown
     Route: 065

REACTIONS (4)
  - Pollakiuria [Not Recovered/Not Resolved]
  - Nonspecific reaction [Unknown]
  - Drug ineffective [Unknown]
  - Incorrect drug administration duration [Unknown]
